FAERS Safety Report 9515360 (Version 3)
Quarter: 2013Q3

REPORT INFORMATION
  Report Type: Spontaneous
  Country: US (occurrence: US)
  Receive Date: 20130911
  Receipt Date: 20130917
  Transmission Date: 20140515
  Serious: Yes (Other)
  Sender: FDA-Public Use
  Company Number: US-JNJFOC-20130804471

PATIENT
  Age: 48 Year
  Sex: Male
  Weight: 81.65 kg

DRUGS (3)
  1. SIMPONI [Suspect]
     Indication: ANKYLOSING SPONDYLITIS
     Route: 058
     Dates: start: 201301
  2. SIMPONI [Suspect]
     Indication: ANKYLOSING SPONDYLITIS
     Route: 058
     Dates: start: 201307, end: 201308
  3. MOBIC [Suspect]
     Indication: ANKYLOSING SPONDYLITIS
     Route: 065

REACTIONS (2)
  - Blood pressure increased [Recovering/Resolving]
  - Headache [Recovering/Resolving]
